FAERS Safety Report 4853019-0 (Version None)
Quarter: 2005Q4

REPORT INFORMATION
  Report Type: 
  Country: None (occurrence: None)
  Receive Date: 20051212
  Receipt Date: 20051128
  Transmission Date: 20060501
  Serious: Yes (Death)
  Sender: FDA-Public Use
  Company Number: GBWYE997124AUG04

PATIENT
  Sex: Female

DRUGS (1)
  1. EFFEXOR [Suspect]
     Indication: DEPRESSION

REACTIONS (17)
  - ALPHA 1 FOETOPROTEIN DECREASED [None]
  - CHROMOSOME ABNORMALITY [None]
  - CONGENITAL ANOMALY [None]
  - CONGENITAL URETERIC ANOMALY [None]
  - DRUG EXPOSURE DURING PREGNANCY [None]
  - FOETAL DISORDER [None]
  - FOETAL GROWTH RETARDATION [None]
  - FOETAL MALFORMATION [None]
  - INTRA-UTERINE DEATH [None]
  - OLIGOHYDRAMNIOS [None]
  - OSTEOGENESIS IMPERFECTA [None]
  - OSTEOPENIA [None]
  - PATHOLOGICAL FRACTURE [None]
  - PULMONARY ARTERY ATRESIA [None]
  - RENAL APLASIA [None]
  - TRISOMY 21 [None]
  - VENTRICULAR SEPTAL DEFECT [None]
